FAERS Safety Report 17972489 (Version 6)
Quarter: 2021Q2

REPORT INFORMATION
  Report Type: Report from Study
  Country: US (occurrence: US)
  Receive Date: 20200702
  Receipt Date: 20210430
  Transmission Date: 20210717
  Serious: Yes (Hospitalization, Other)
  Sender: FDA-Public Use
  Company Number: US-GLAXOSMITHKLINE-US2020AMR073631

PATIENT
  Sex: Female

DRUGS (13)
  1. NIRAPARIB [Suspect]
     Active Substance: NIRAPARIB
     Indication: OVARIAN CANCER
     Dosage: UNK,Z(CLINICAL TRIAL?300MG?200MG?100MG)
     Dates: start: 2015, end: 201709
  2. NIRAPARIB [Suspect]
     Active Substance: NIRAPARIB
     Dosage: 200 MG, QD
     Dates: start: 20200422
  3. NIRAPARIB [Suspect]
     Active Substance: NIRAPARIB
     Dosage: 200 MG, QD
  4. NIRAPARIB [Suspect]
     Active Substance: NIRAPARIB
     Dosage: 100 MG, QOD
     Dates: start: 20200610
  5. NIRAPARIB [Suspect]
     Active Substance: NIRAPARIB
     Dosage: 200 MG, QD
  6. NIRAPARIB [Suspect]
     Active Substance: NIRAPARIB
     Dosage: 200 MG, QD
  7. NIRAPARIB [Suspect]
     Active Substance: NIRAPARIB
     Dosage: 200 MG, QD
  8. NIRAPARIB [Suspect]
     Active Substance: NIRAPARIB
     Dosage: 200 MG, QD
     Dates: start: 20200422, end: 20200511
  9. NIRAPARIB [Suspect]
     Active Substance: NIRAPARIB
     Dosage: 200 MG, QD
     Dates: start: 20200729
  10. NIRAPARIB [Suspect]
     Active Substance: NIRAPARIB
     Dosage: 200 MG, QD
  11. NIRAPARIB [Suspect]
     Active Substance: NIRAPARIB
     Dosage: 200 MG, QD
     Dates: start: 20200512, end: 20200609
  12. NIRAPARIB [Suspect]
     Active Substance: NIRAPARIB
     Dosage: 100 MG, QD
     Dates: start: 20200616
  13. AVASTIN [Suspect]
     Active Substance: BEVACIZUMAB
     Indication: PRODUCT USED FOR UNKNOWN INDICATION
     Dosage: UNK
     Dates: start: 20210406

REACTIONS (22)
  - Hospitalisation [Unknown]
  - Stomatitis [Recovering/Resolving]
  - Constipation [Recovering/Resolving]
  - Neuropathy peripheral [Unknown]
  - Family stress [Unknown]
  - Gastrooesophageal reflux disease [Unknown]
  - Gastrointestinal haemorrhage [Unknown]
  - Retching [Unknown]
  - Platelet count decreased [Unknown]
  - Off label use [Unknown]
  - Oral pain [Not Recovered/Not Resolved]
  - Adverse drug reaction [Unknown]
  - Insomnia [Unknown]
  - Dysphagia [Unknown]
  - Heart rate increased [Unknown]
  - Feeling jittery [Unknown]
  - Stomatitis [Unknown]
  - Intestinal obstruction [Unknown]
  - Blood pressure increased [Not Recovered/Not Resolved]
  - Oropharyngeal pain [Unknown]
  - Haemoglobin decreased [Unknown]
  - Nausea [Recovering/Resolving]
